FAERS Safety Report 19606534 (Version 2)
Quarter: 2021Q3

REPORT INFORMATION
  Report Type: Spontaneous
  Country: JP (occurrence: JP)
  Receive Date: 20210725
  Receipt Date: 20210730
  Transmission Date: 20211014
  Serious: Yes (Death, Other)
  Sender: FDA-Public Use
  Company Number: JP-UCBSA-2021034702

PATIENT

DRUGS (2)
  1. VIMPAT [Suspect]
     Active Substance: LACOSAMIDE
     Indication: EPILEPSY
     Dosage: 2 MG/KG DAILY
     Route: 048
  2. VIMPAT [Suspect]
     Active Substance: LACOSAMIDE
     Dosage: DOSE WAS INCREASED BY 2 MG/KG WITH MORE THAN A WEEK OF INTERVALS
     Route: 048

REACTIONS (6)
  - Death [Fatal]
  - Vomiting [Unknown]
  - Epilepsy [Unknown]
  - Somnolence [Unknown]
  - Dizziness [Unknown]
  - Drug ineffective [Unknown]
